FAERS Safety Report 9892862 (Version 1)
Quarter: 2014Q1

REPORT INFORMATION
  Report Type: Report from Study
  Country: US (occurrence: US)
  Receive Date: 20140213
  Receipt Date: 20140213
  Transmission Date: 20141002
  Serious: Yes (Other)
  Sender: FDA-Public Use
  Company Number: US-ROCHE-1325445

PATIENT
  Sex: Female
  Weight: 68.1 kg

DRUGS (20)
  1. AVASTIN [Suspect]
     Indication: BREAST CANCER STAGE IV
     Dosage: RECEIVED ON 25/MAY/2011, 01/JUL/2011, 22/JUL/2011, 15/AUG/2011, 08/SEP/2011, 07/OCT/2011, 07/NOV/201
     Route: 042
  2. AVASTIN [Suspect]
     Indication: BONE CANCER
     Route: 042
     Dates: start: 20120226
  3. AVASTIN [Suspect]
     Indication: METASTASES TO LIVER
  4. AVASTIN [Suspect]
     Indication: METASTASES TO LUNG
  5. AVASTIN [Suspect]
     Indication: METASTASES TO CENTRAL NERVOUS SYSTEM
  6. TAXOTERE [Concomitant]
  7. ZOMETA [Concomitant]
  8. FASLODEX [Concomitant]
     Route: 030
  9. TAXOL [Concomitant]
  10. ZANTAC [Concomitant]
  11. ZOLOFT [Concomitant]
  12. LOSARTAN [Concomitant]
     Indication: HYPERTENSION
     Dosage: QHS
     Route: 065
  13. PROCHLORPERAZINE [Concomitant]
     Dosage: AS NEEDED
     Route: 065
  14. FELODIPINE [Concomitant]
     Route: 065
  15. NIFEDIPINE [Concomitant]
  16. DIOVAN [Concomitant]
     Indication: HYPERTENSION
  17. VITAMIN E [Concomitant]
  18. CARBOPLATIN [Concomitant]
  19. DEXAMETHASONE [Concomitant]
     Route: 065
  20. DEXAMETHASONE [Concomitant]
     Route: 065
     Dates: start: 20120706

REACTIONS (26)
  - Pancytopenia [Unknown]
  - Proteinuria [Unknown]
  - Fatigue [Unknown]
  - Decreased appetite [Unknown]
  - Hypertension [Unknown]
  - Urinary tract infection [Unknown]
  - Haematuria [Unknown]
  - Nephrolithiasis [Unknown]
  - Asthenia [Unknown]
  - Dyspnoea exertional [Unknown]
  - Oedema peripheral [Unknown]
  - Lymphoedema [Unknown]
  - Cough [Unknown]
  - Arthralgia [Unknown]
  - Musculoskeletal pain [Unknown]
  - Insomnia [Unknown]
  - Arthralgia [Unknown]
  - Back pain [Unknown]
  - Crying [Unknown]
  - Flushing [Unknown]
  - Metastases to liver [Unknown]
  - Anaemia [Unknown]
  - Oedema peripheral [Unknown]
  - Breath sounds abnormal [Unknown]
  - Leukopenia [Unknown]
  - Breath sounds abnormal [Unknown]
